FAERS Safety Report 17224024 (Version 1)
Quarter: 2019Q4

REPORT INFORMATION
  Report Type: Spontaneous
  Country: US (occurrence: US)
  Receive Date: 20191209
  Receipt Date: 20191209
  Transmission Date: 20200122
  Serious: Yes (Hospitalization)
  Sender: FDA-Public Use
  Company Number: None

PATIENT
  Age: 55 Year
  Sex: Female

DRUGS (3)
  1. ALECENSA [Concomitant]
     Active Substance: ALECTINIB HYDROCHLORIDE
  2. ASPIRIN. [Concomitant]
     Active Substance: ASPIRIN
  3. LORBRENA [Suspect]
     Active Substance: LORLATINIB
     Indication: NEOPLASM MALIGNANT
     Route: 048
     Dates: start: 20191122

REACTIONS (2)
  - Respiratory disorder [None]
  - Therapy cessation [None]

NARRATIVE: CASE EVENT DATE: 20191130
